FAERS Safety Report 15941134 (Version 1)
Quarter: 2019Q1

REPORT INFORMATION
  Report Type: Spontaneous
  Country: GB (occurrence: GB)
  Receive Date: 20190208
  Receipt Date: 20190208
  Transmission Date: 20190417
  Serious: Yes (Death, Life-Threatening, Hospitalization)
  Sender: FDA-Public Use
  Company Number: GB-MYLANLABS-2019M1010939

PATIENT
  Age: 86 Year
  Sex: Female

DRUGS (1)
  1. WARFARIN [Suspect]
     Active Substance: WARFARIN
     Indication: ANTICOAGULANT THERAPY
     Route: 065

REACTIONS (4)
  - Respiratory failure [Fatal]
  - Haematoma [Recovered/Resolved]
  - Obstructive airways disorder [Unknown]
  - Ecchymosis [Unknown]
